FAERS Safety Report 18863751 (Version 1)
Quarter: 2021Q1

REPORT INFORMATION
  Report Type: Spontaneous
  Country: IN (occurrence: IN)
  Receive Date: 20210208
  Receipt Date: 20210208
  Transmission Date: 20210420
  Serious: Yes (Hospitalization)
  Sender: FDA-Public Use
  Company Number: IN-MYLANLABS-2021M1007630

PATIENT
  Sex: Female

DRUGS (8)
  1. DICYCLOVERINE [Suspect]
     Active Substance: DICYCLOMINE HYDROCHLORIDE
     Indication: DYSMENORRHOEA
     Dosage: INITIAL DOSAGE NOT STATED
     Route: 065
     Dates: start: 2007
  2. DICYCLOVERINE [Suspect]
     Active Substance: DICYCLOMINE HYDROCHLORIDE
     Indication: HEADACHE
     Dosage: INCREASED TO 10?15 TABLETS DAILY IN 2018 TO GET RELIEF FROM STRESS OF MARITAL DISCORD
     Route: 065
     Dates: start: 2018
  3. DICYCLOVERINE [Suspect]
     Active Substance: DICYCLOMINE HYDROCHLORIDE
     Indication: NERVOUSNESS
     Dosage: FROM 2014, SHE HAD STARTED TAKING 2?3 TABLETS OF DICYCLOVERINE DAILY TO ?..
     Route: 065
     Dates: start: 2014
  4. DICYCLOVERINE [Suspect]
     Active Substance: DICYCLOMINE HYDROCHLORIDE
     Indication: STRESS
  5. MEFENAMIC ACID. [Suspect]
     Active Substance: MEFENAMIC ACID
     Indication: DYSMENORRHOEA
     Dosage: INITIAL DOSAGE NOT STATED
     Route: 065
     Dates: start: 2007
  6. MEFENAMIC ACID. [Suspect]
     Active Substance: MEFENAMIC ACID
     Indication: STRESS
     Dosage: FROM 2014, SHE HAD STARTED TAKING 2?3 TABLETS OF MEFENAMIC ACID DAILY TO GET ??
     Route: 065
     Dates: start: 2014
  7. MEFENAMIC ACID. [Suspect]
     Active Substance: MEFENAMIC ACID
     Indication: HEADACHE
  8. MEFENAMIC ACID. [Suspect]
     Active Substance: MEFENAMIC ACID
     Indication: NERVOUSNESS
     Dosage: INCREASED TO 10?15 TABLETS DAILY IN 2018
     Route: 065
     Dates: start: 2018

REACTIONS (14)
  - Restlessness [Recovered/Resolved]
  - Palpitations [Recovered/Resolved]
  - Intentional overdose [Recovered/Resolved]
  - Headache [Recovered/Resolved]
  - Adjustment disorder [Recovered/Resolved]
  - Anxiety [Recovered/Resolved]
  - Drug abuse [Recovering/Resolving]
  - Intentional product misuse [Recovered/Resolved]
  - Drug dependence [Recovered/Resolved]
  - Drug tolerance [Recovered/Resolved]
  - Drug withdrawal syndrome [Recovered/Resolved]
  - Hyperhidrosis [Recovered/Resolved]
  - Off label use [Unknown]
  - Tachycardia [Recovered/Resolved]

NARRATIVE: CASE EVENT DATE: 2018
